FAERS Safety Report 7879279-X (Version None)
Quarter: 2011Q4

REPORT INFORMATION
  Report Type: 
  Country: None (occurrence: None)
  Receive Date: 20111101
  Receipt Date: 20111021
  Transmission Date: 20120403
  Serious: Yes (Hospitalization)
  Sender: FDA-Public Use
  Company Number: US-BAYER-201037026NA

PATIENT
  Age: 43 Year
  Sex: Female
  Weight: 68.027 kg

DRUGS (3)
  1. LORTAB [Concomitant]
     Dosage: UNK
     Dates: start: 20030801
  2. YASMIN [Suspect]
     Route: 048
  3. BEXTRA [Concomitant]
     Dosage: UNK UNK, PRN
     Dates: start: 20030819

REACTIONS (3)
  - PAIN [None]
  - CEREBROVASCULAR ACCIDENT [None]
  - EMOTIONAL DISTRESS [None]
